FAERS Safety Report 6965764-1 (Version None)
Quarter: 2010Q3

REPORT INFORMATION
  Report Type: 
  Country: None (occurrence: None)
  Receive Date: 20100903
  Receipt Date: 20100901
  Transmission Date: 20110219
  Serious: Yes (Hospitalization, Disabling, Other)
  Sender: FDA-Public Use
  Company Number: US-MERCK-0711USA04766

PATIENT
  Age: 75 Year
  Sex: Female
  Weight: 67 kg

DRUGS (3)
  1. FOSAMAX [Suspect]
     Indication: OSTEOPOROSIS
     Route: 048
     Dates: start: 19950101, end: 20060601
  2. ZOCOR [Concomitant]
     Route: 065
     Dates: start: 19970101
  3. LEVOTHYROXINE SODIUM [Concomitant]
     Route: 065
     Dates: start: 19970101

REACTIONS (32)
  - ADVERSE DRUG REACTION [None]
  - ADVERSE EVENT [None]
  - ARTHRALGIA [None]
  - BUNDLE BRANCH BLOCK LEFT [None]
  - CATARACT [None]
  - CELLULITIS [None]
  - CERUMEN IMPACTION [None]
  - CHRONIC OBSTRUCTIVE PULMONARY DISEASE [None]
  - DEAFNESS [None]
  - DECREASED APPETITE [None]
  - DENTAL CARIES [None]
  - EYE DISORDER [None]
  - FISTULA DISCHARGE [None]
  - HYPERGLYCAEMIA [None]
  - HYPERNATRAEMIA [None]
  - IMPAIRED HEALING [None]
  - INSOMNIA [None]
  - INTERVERTEBRAL DISC DEGENERATION [None]
  - ISCHAEMIA [None]
  - LEFT VENTRICULAR HYPERTROPHY [None]
  - MYOCLONUS [None]
  - NECROTISING ULCERATIVE PERIODONTITIS [None]
  - ORAL INFECTION [None]
  - OSTEOMYELITIS [None]
  - OSTEONECROSIS OF JAW [None]
  - OTITIS MEDIA [None]
  - PAIN [None]
  - PAIN IN EXTREMITY [None]
  - RETINAL DISORDER [None]
  - RHINITIS ALLERGIC [None]
  - SINUSITIS [None]
  - TOOTH FRACTURE [None]
